FAERS Safety Report 21361171 (Version 1)
Quarter: 2022Q3

REPORT INFORMATION
  Report Type: Spontaneous
  Country: US (occurrence: US)
  Receive Date: 20220921
  Receipt Date: 20220921
  Transmission Date: 20221027
  Serious: Yes (Other)
  Sender: FDA-Public Use
  Company Number: US-NOVARTISPH-NVSC2020US359271

PATIENT
  Age: 2 Decade
  Sex: Female

DRUGS (13)
  1. LIDOCAINE [Suspect]
     Active Substance: LIDOCAINE
     Indication: Induction of anaesthesia
     Dosage: 100 MG, INDUCTION DOSE
     Route: 065
  2. PROPOFOL [Suspect]
     Active Substance: PROPOFOL
     Indication: Induction and maintenance of anaesthesia
     Dosage: 200 MG, INDUCTION DOSE
     Route: 065
  3. PROPOFOL [Suspect]
     Active Substance: PROPOFOL
     Dosage: 75 MCG/KG/MIN, INFUSION MAINTENANCE DOSE
     Route: 042
  4. PROPOFOL [Suspect]
     Active Substance: PROPOFOL
     Dosage: 150 MG
     Route: 040
  5. PROPOFOL [Suspect]
     Active Substance: PROPOFOL
     Dosage: 125 MCG/KG/HR, INCREASED INFUSION DOSE
     Route: 042
  6. MIDAZOLAM [Suspect]
     Active Substance: MIDAZOLAM
     Indication: Maintenance of anaesthesia
     Dosage: 2 MG, PREMEDICATION
     Route: 065
  7. MIDAZOLAM [Suspect]
     Active Substance: MIDAZOLAM
     Indication: Premedication
     Dosage: 6 MG, INTERMITTENT BOLUSES
     Route: 040
  8. MIDAZOLAM [Suspect]
     Active Substance: MIDAZOLAM
     Dosage: 2 MG
     Route: 042
  9. MIDAZOLAM [Suspect]
     Active Substance: MIDAZOLAM
     Dosage: UNK, ADDITIONAL
     Route: 065
  10. VECURONIUM [Suspect]
     Active Substance: VECURONIUM BROMIDE
     Indication: Paralysis
     Dosage: 10 MG, MAINTAINED WITH INTERMITTENT BOLUSES
     Route: 040
  11. VECURONIUM [Suspect]
     Active Substance: VECURONIUM BROMIDE
     Dosage: 10 MG, ADDITIONAL
     Route: 065
  12. DEXMEDETOMIDINE [Suspect]
     Active Substance: DEXMEDETOMIDINE
     Indication: Maintenance of anaesthesia
     Dosage: 0.6 MCG/KG/HR
     Route: 042
  13. SEVOFLURANE [Suspect]
     Active Substance: SEVOFLURANE
     Indication: Product used for unknown indication
     Dosage: AT 3.5 PERCENT
     Route: 065

REACTIONS (2)
  - Unwanted awareness during anaesthesia [Unknown]
  - Product use in unapproved indication [Unknown]
